FAERS Safety Report 7621064-8 (Version None)
Quarter: 2011Q3

REPORT INFORMATION
  Report Type: 
  Country: None (occurrence: None)
  Receive Date: 20110719
  Receipt Date: 20100615
  Transmission Date: 20111222
  Serious: No
  Sender: FDA-Public Use
  Company Number: US-KINGPHARMUSA00001-K201000765

PATIENT
  Sex: Female

DRUGS (2)
  1. LEVOXYL [Suspect]
     Dosage: UNK, QPM
     Route: 048
  2. LEVOXYL [Suspect]
     Dosage: UNK, QAM
     Route: 048

REACTIONS (1)
  - SOMNOLENCE [None]
